FAERS Safety Report 10672543 (Version 1)
Quarter: 2014Q4

REPORT INFORMATION
  Report Type: Spontaneous
  Country: US (occurrence: US)
  Receive Date: 20141223
  Receipt Date: 20141223
  Transmission Date: 20150529
  Serious: No
  Sender: FDA-Public Use
  Company Number: US-009507513-1412USA000424

PATIENT
  Sex: Female

DRUGS (4)
  1. REBETOL [Suspect]
     Active Substance: RIBAVIRIN
     Dosage: 1200 MG, UNK
     Route: 048
  2. VICTRELIS [Suspect]
     Active Substance: BOCEPREVIR
     Indication: CHRONIC HEPATITIS C
     Dosage: 4 TABLETS, TID
     Route: 048
     Dates: start: 20111212
  3. REBETOL [Suspect]
     Active Substance: RIBAVIRIN
     Indication: CHRONIC HEPATITIS C
     Dosage: 1400 MG, UNK
     Route: 048
     Dates: start: 20111114
  4. PEGASYS [Suspect]
     Active Substance: PEGINTERFERON ALFA-2A
     Indication: CHRONIC HEPATITIS C
     Dosage: 180 MCG, QW
     Route: 058
     Dates: start: 20111114

REACTIONS (9)
  - Haemoglobin decreased [Unknown]
  - Cheilitis [Not Recovered/Not Resolved]
  - Platelet count decreased [Unknown]
  - Malaise [Unknown]
  - Red blood cell count decreased [Unknown]
  - Rash [Not Recovered/Not Resolved]
  - White blood cell count decreased [Unknown]
  - Nausea [Not Recovered/Not Resolved]
  - Diarrhoea [Not Recovered/Not Resolved]
